FAERS Safety Report 20067800 (Version 3)
Quarter: 2021Q4

REPORT INFORMATION
  Report Type: Spontaneous
  Country: JP (occurrence: JP)
  Receive Date: 20211115
  Receipt Date: 20211126
  Transmission Date: 20220303
  Serious: Yes (Hospitalization, Other)
  Sender: FDA-Public Use
  Company Number: JP-TAKEDA-2021TJP117460

PATIENT
  Age: 8 Decade
  Sex: Male

DRUGS (2)
  1. AGRYLIN [Suspect]
     Active Substance: ANAGRELIDE HYDROCHLORIDE
     Indication: Essential thrombocythaemia
     Dosage: 0.5 MILLIGRAM, BID
     Route: 048
  2. AGRYLIN [Suspect]
     Active Substance: ANAGRELIDE HYDROCHLORIDE
     Dosage: 0.5 MILLIGRAM, QD
     Route: 048

REACTIONS (3)
  - Ventricular fibrillation [Recovered/Resolved]
  - Extrasystoles [Recovered/Resolved]
  - Product use issue [Recovered/Resolved]
